FAERS Safety Report 9887561 (Version 1)
Quarter: 2013Q4

REPORT INFORMATION
  Report Type: Spontaneous
  Country: US (occurrence: None)
  Receive Date: 20131223
  Receipt Date: 20131223
  Transmission Date: 20140711
  Serious: No
  Sender: FDA-Public Use
  Company Number: 220482

PATIENT
  Sex: Female

DRUGS (3)
  1. PICATO (0.015 %) [Suspect]
     Indication: PRECANCEROUS SKIN LESION
     Dates: start: 20130202
  2. HYDROCORTISONE CREAM(HYDROCORTISONE) (2.5 %, CREAM} [Concomitant]
  3. CLINDAMYCIN 10 (CLINDAMYCIN) [Concomitant]

REACTIONS (3)
  - Application site pain [None]
  - Application site erythema [None]
  - Application site exfoliation [None]
